FAERS Safety Report 5964920-9 (Version None)
Quarter: 2008Q4

REPORT INFORMATION
  Report Type: 
  Country: None (occurrence: None)
  Receive Date: 20081125
  Receipt Date: 20081112
  Transmission Date: 20090506
  Serious: Yes (Hospitalization, Other)
  Sender: FDA-Public Use
  Company Number: PHHY2008JP18821

PATIENT
  Sex: Female

DRUGS (8)
  1. SALAGEN [Suspect]
     Indication: SJOGREN'S SYNDROME
     Dosage: 5 MG, QD
     Route: 048
     Dates: start: 20080726, end: 20080804
  2. CLARITHROMYCIN [Concomitant]
     Indication: BRONCHOPNEUMONIA
     Dosage: 2 DF/DAY
     Route: 048
  3. RABEPRAZOLE SODIUM [Concomitant]
     Indication: REFLUX OESOPHAGITIS
     Dosage: 10 MG, UNK
     Route: 048
     Dates: start: 20080130
  4. THYRADIN [Concomitant]
     Indication: AUTOIMMUNE THYROIDITIS
     Dosage: 5 MCG/DAY
     Route: 048
  5. AMLODIPINE BESYLATE [Concomitant]
     Indication: HYPERTENSION
     Dosage: 5 MG/DAY
     Route: 048
     Dates: start: 20030930
  6. MARZULENE [Concomitant]
     Indication: GASTRITIS
     Dosage: 1.5 GM/DAY
     Route: 048
     Dates: start: 20070216
  7. FERROMIA [Concomitant]
     Indication: IRON DEFICIENCY ANAEMIA
     Dosage: 50 MG/DAY
     Route: 048
     Dates: start: 20080530
  8. MAGLAX [Concomitant]
     Indication: GASTRITIS
     Dosage: 990 MG/DAY
     Route: 048
     Dates: start: 20080125

REACTIONS (13)
  - ASPARTATE AMINOTRANSFERASE INCREASED [None]
  - CARDIOMEGALY [None]
  - COUGH [None]
  - GAMMA-GLUTAMYLTRANSFERASE INCREASED [None]
  - GENERAL PHYSICAL HEALTH DETERIORATION [None]
  - HYPOXIA [None]
  - INTERSTITIAL LUNG DISEASE [None]
  - NASOPHARYNGITIS [None]
  - OXYGEN SUPPLEMENTATION [None]
  - PNEUMOCYSTIS JIROVECI PNEUMONIA [None]
  - PULMONARY ALVEOLAR HAEMORRHAGE [None]
  - PYREXIA [None]
  - SPINAL FRACTURE [None]
